FAERS Safety Report 12646932 (Version 1)
Quarter: 2016Q3

REPORT INFORMATION
  Report Type: Spontaneous
  Country: US (occurrence: None)
  Receive Date: 20160811
  Receipt Date: 20160811
  Transmission Date: 20161109
  Serious: Yes (Disabling, Other)
  Sender: FDA-Public Use
  Company Number: None

PATIENT
  Age: 47 Year
  Sex: Female
  Weight: 72.58 kg

DRUGS (10)
  1. PROGESTERONE. [Concomitant]
     Active Substance: PROGESTERONE
  2. OXYCODONE HYDROCHLORIDE. [Suspect]
     Active Substance: OXYCODONE HYDROCHLORIDE
     Indication: FIBROMYALGIA
     Route: 048
     Dates: start: 20160728, end: 20160809
  3. ZONISAMIDE. [Concomitant]
     Active Substance: ZONISAMIDE
  4. SPIRINOLACTONE (QUALITEST PHARMACEUTICALS) [Concomitant]
     Active Substance: SPIRONOLACTONE
  5. EXCEDRIN [Concomitant]
     Active Substance: ACETAMINOPHEN\ASPIRIN\CAFFEINE
  6. CYCLOBENZAPRINE [Concomitant]
     Active Substance: CYCLOBENZAPRINE
  7. MORPHINE SULF [Concomitant]
     Active Substance: MORPHINE SULFATE
  8. OMEPRAZOLE. [Concomitant]
     Active Substance: OMEPRAZOLE
  9. DULOXETINE. [Concomitant]
     Active Substance: DULOXETINE
  10. ALPAZOLAM [Concomitant]
     Active Substance: ALPRAZOLAM

REACTIONS (5)
  - Product size issue [None]
  - Pain [None]
  - Drug ineffective [None]
  - Device colour issue [None]
  - Product quality issue [None]

NARRATIVE: CASE EVENT DATE: 20160728
